FAERS Safety Report 17391782 (Version 1)
Quarter: 2020Q1

REPORT INFORMATION
  Report Type: Spontaneous
  Country: NL (occurrence: DE)
  Receive Date: 20200207
  Receipt Date: 20200207
  Transmission Date: 20200409
  Serious: Yes (Hospitalization, Other)
  Sender: FDA-Public Use
  Company Number: DE-FRESENIUS KABI-FK202001082

PATIENT
  Sex: Male
  Weight: 100 kg

DRUGS (4)
  1. GLYCINE/ALANINE/SERINE/ASPARTIC ACID/LYSINE/TYROSINE/LEUCINE/METHIONINE/PHENYLALANINE/HISTIDINE/VALI (PARENTERAL NUTRITION) [Suspect]
     Active Substance: AMINO ACIDS\DEXTROSE\ELECTROLYTES NOS\SOYBEAN OIL
     Indication: PARENTERAL NUTRITION
     Dosage: 2000 ML WITHIN 24 HOURS
     Route: 065
     Dates: start: 20191021
  2. GLYCINE/ALANINE/SERINE/ASPARTIC ACID/LYSINE/TYROSINE/LEUCINE/METHIONINE/PHENYLALANINE/HISTIDINE/VALI (PARENTERAL NUTRITION) [Suspect]
     Active Substance: AMINO ACIDS\DEXTROSE\ELECTROLYTES NOS\SOYBEAN OIL
     Indication: PARENTERAL NUTRITION
     Route: 065
     Dates: start: 20190920, end: 20191020
  3. CARBOPLATIN (MANUFACTURER UNKNOWN) [Suspect]
     Active Substance: CARBOPLATIN
     Indication: CHEMOTHERAPY
     Dosage: EVERY 14 DAYS ON DAY 1
     Route: 065
  4. GEMCITABINE. [Suspect]
     Active Substance: GEMCITABINE
     Indication: CHEMOTHERAPY
     Dosage: EVERY 14 DAYS ON DAY 1
     Route: 065

REACTIONS (10)
  - Restlessness [Unknown]
  - Nausea [Unknown]
  - Blood albumin decreased [Unknown]
  - Pleural effusion [Unknown]
  - Urosepsis [Unknown]
  - Dizziness [Unknown]
  - Pain [Unknown]
  - Urinary tract infection [Unknown]
  - Decubitus ulcer [Unknown]
  - Muscle spasticity [Unknown]

NARRATIVE: CASE EVENT DATE: 2019
